FAERS Safety Report 11169288 (Version 2)
Quarter: 2015Q2

REPORT INFORMATION
  Report Type: Spontaneous
  Country: US (occurrence: US)
  Receive Date: 20150605
  Receipt Date: 20150611
  Transmission Date: 20150821
  Serious: Yes (Other)
  Sender: FDA-Public Use
  Company Number: US-ALLERGAN-1507703US

PATIENT
  Age: 60 Year
  Sex: Female
  Weight: 58.96 kg

DRUGS (59)
  1. BOTOX [Suspect]
     Active Substance: ONABOTULINUMTOXINA
     Dosage: 15 UNITS, SINGLE
     Route: 030
     Dates: start: 20141016, end: 20141016
  2. BOTOX [Suspect]
     Active Substance: ONABOTULINUMTOXINA
     Dosage: 17.5 UNITS, SINGLE
     Route: 030
     Dates: start: 20150115, end: 20150115
  3. BOTOX [Suspect]
     Active Substance: ONABOTULINUMTOXINA
     Dosage: 5 UNITS, SINGLE
     Route: 030
     Dates: start: 20150115, end: 20150115
  4. BABY ASPIRIN [Concomitant]
     Active Substance: ASPIRIN
     Dosage: UNK
     Route: 048
  5. MULTIVITAMIN [Concomitant]
     Active Substance: VITAMINS
     Dosage: UNK
     Route: 048
  6. VITAMIN B12 + FOLIC ACID [Concomitant]
     Dosage: UNK
     Route: 048
  7. VITAMIN C + E [Concomitant]
     Dosage: UNK
     Route: 048
  8. BOTOX [Suspect]
     Active Substance: ONABOTULINUMTOXINA
     Dosage: 15 UNITS, SINGLE
     Route: 030
     Dates: start: 20141016, end: 20141016
  9. BOTOX [Suspect]
     Active Substance: ONABOTULINUMTOXINA
     Dosage: 2.5 UNITS, SINGLE
     Route: 030
     Dates: start: 20141016, end: 20141016
  10. BOTOX [Suspect]
     Active Substance: ONABOTULINUMTOXINA
     Dosage: 5 UNITS, SINGLE
     Route: 030
     Dates: start: 20141016, end: 20141016
  11. BOTOX [Suspect]
     Active Substance: ONABOTULINUMTOXINA
     Dosage: 10 UNITS, SINGLE
     Route: 030
     Dates: start: 20150115, end: 20150115
  12. CALCIUM +D [Concomitant]
     Active Substance: CALCIUM\VITAMIN D
     Dosage: UNK
     Route: 048
  13. BUTALBITAL, ACETAMINOPHEN, AND CAFFEINE [Concomitant]
     Active Substance: ACETAMINOPHEN\BUTALBITAL\CAFFEINE
     Dosage: 50MG-325MG-40MG TABLET
     Route: 048
  14. BOTOX [Suspect]
     Active Substance: ONABOTULINUMTOXINA
     Dosage: 10 UNITS, SINGLE
     Route: 030
     Dates: start: 20141016, end: 20141016
  15. BOTOX [Suspect]
     Active Substance: ONABOTULINUMTOXINA
     Dosage: 20 UNITS, SINGLE
     Route: 030
     Dates: start: 20141016, end: 20141016
  16. BOTOX [Suspect]
     Active Substance: ONABOTULINUMTOXINA
     Dosage: 25 UNITS, SINGLE
     Route: 030
     Dates: start: 20150115, end: 20150115
  17. BOTOX [Suspect]
     Active Substance: ONABOTULINUMTOXINA
     Dosage: 15 UNITS, SINGLE
     Route: 030
     Dates: start: 20150115, end: 20150115
  18. MAGNESIA [Concomitant]
     Dosage: UNK
     Route: 048
  19. OMEPRAZOLE. [Concomitant]
     Active Substance: OMEPRAZOLE
     Dosage: 40 MG, QD
     Route: 048
  20. SUMATRIPTAN. [Concomitant]
     Active Substance: SUMATRIPTAN
     Dosage: 100 MG, PRN
     Route: 048
  21. TOPIRAGEN [Concomitant]
     Active Substance: TOPIRAMATE
     Dosage: 150 MG, UNK
     Route: 048
  22. TRAZODONE [Concomitant]
     Active Substance: TRAZODONE HYDROCHLORIDE
     Dosage: 150 MG, QHS
     Route: 048
  23. TOPIRAMATE. [Concomitant]
     Active Substance: TOPIRAMATE
     Dosage: 150 MG, UNK
  24. BOTOX [Suspect]
     Active Substance: ONABOTULINUMTOXINA
     Dosage: 10 UNITS, SINGLE
     Route: 030
     Dates: start: 20141016, end: 20141016
  25. BOTOX [Suspect]
     Active Substance: ONABOTULINUMTOXINA
     Dosage: 2.5 UNITS, SINGLE
     Route: 030
     Dates: start: 20141016, end: 20141016
  26. BOTOX [Suspect]
     Active Substance: ONABOTULINUMTOXINA
     Dosage: 10 UNITS, SINGLE
     Route: 030
     Dates: start: 20150115, end: 20150115
  27. BOTOX [Suspect]
     Active Substance: ONABOTULINUMTOXINA
     Dosage: 5 UNITS, SINGLE
     Route: 030
     Dates: start: 20150115, end: 20150115
  28. FOSAMAX [Concomitant]
     Active Substance: ALENDRONATE SODIUM
     Dosage: 70 MG, UNK
  29. LUTEIN [Concomitant]
     Active Substance: LUTEIN
     Dosage: UNK
     Route: 048
  30. SERTRALINE [Concomitant]
     Active Substance: SERTRALINE HYDROCHLORIDE
     Dosage: 100 MG, BID
     Route: 048
  31. TOPAMAX [Concomitant]
     Active Substance: TOPIRAMATE
     Dosage: 100 MG, UNK
  32. PREDNISONE. [Concomitant]
     Active Substance: PREDNISONE
     Dosage: 10 MG, QD
     Route: 048
  33. TOPIRAMATE. [Concomitant]
     Active Substance: TOPIRAMATE
     Dosage: 300 MG, QD
  34. BOTOX [Suspect]
     Active Substance: ONABOTULINUMTOXINA
     Dosage: 25 UNITS, SINGLE
     Route: 030
     Dates: start: 20141016, end: 20141016
  35. BOTOX [Suspect]
     Active Substance: ONABOTULINUMTOXINA
     Dosage: 20 UNITS, SINGLE
     Route: 030
     Dates: start: 20141016, end: 20141016
  36. BOTOX [Suspect]
     Active Substance: ONABOTULINUMTOXINA
     Dosage: 2.5 UNITS, SINGLE
     Route: 030
     Dates: start: 20150115, end: 20150115
  37. ZINC CHELATE [Concomitant]
     Dosage: UNK
     Route: 048
  38. TRAZODONE [Concomitant]
     Active Substance: TRAZODONE HYDROCHLORIDE
     Dosage: 150 MG, UNK
     Route: 048
  39. LYRICA [Concomitant]
     Active Substance: PREGABALIN
  40. BOTOX [Suspect]
     Active Substance: ONABOTULINUMTOXINA
     Dosage: 5 UNITS, SINGLE
     Route: 030
     Dates: start: 20141016, end: 20141016
  41. BOTOX [Suspect]
     Active Substance: ONABOTULINUMTOXINA
     Dosage: 25 UNITS, SINGLE
     Route: 030
     Dates: start: 20150115, end: 20150115
  42. BOTOX [Suspect]
     Active Substance: ONABOTULINUMTOXINA
     Dosage: 20 UNITS, SINGLE
     Route: 030
     Dates: start: 20150115, end: 20150115
  43. BOTOX [Suspect]
     Active Substance: ONABOTULINUMTOXINA
     Dosage: 2.5 UNITS, SINGLE
     Route: 030
     Dates: start: 20150115, end: 20150115
  44. DIAZEPAM. [Concomitant]
     Active Substance: DIAZEPAM
     Dosage: 5 MG, UNK
     Route: 048
  45. VITAMIN E [Concomitant]
     Active Substance: .ALPHA.-TOCOPHEROL
     Dosage: UNK
  46. TRAZODONE [Concomitant]
     Active Substance: TRAZODONE HYDROCHLORIDE
     Dosage: 50 MG, QHS
     Route: 048
  47. BOTOX [Suspect]
     Active Substance: ONABOTULINUMTOXINA
     Dosage: 20 UNITS, SINGLE
     Route: 030
     Dates: start: 20150115, end: 20150115
  48. BOTOX [Suspect]
     Active Substance: ONABOTULINUMTOXINA
     Dosage: 17.5 UNITS, SINGLE
     Route: 030
     Dates: start: 20150115, end: 20150115
  49. LEVOTHYROXINE [Concomitant]
     Active Substance: LEVOTHYROXINE
     Dosage: 88 ?G, UNK
  50. BOTOX [Suspect]
     Active Substance: ONABOTULINUMTOXINA
     Indication: MIGRAINE
     Dosage: UNK UNK, SINGLE
     Route: 030
     Dates: start: 201409, end: 201409
  51. BOTOX [Suspect]
     Active Substance: ONABOTULINUMTOXINA
     Dosage: 25 UNITS, SINGLE
     Route: 030
     Dates: start: 20141016, end: 20141016
  52. BOTOX [Suspect]
     Active Substance: ONABOTULINUMTOXINA
     Dosage: 17.5 UNITS, SINGLE
     Route: 030
     Dates: start: 20141016, end: 20141016
  53. BOTOX [Suspect]
     Active Substance: ONABOTULINUMTOXINA
     Dosage: 17.5 UNITS, SINGLE
     Route: 030
     Dates: start: 20141016, end: 20141016
  54. BOTOX [Suspect]
     Active Substance: ONABOTULINUMTOXINA
     Dosage: 15 UNITS, SINGLE
     Route: 030
     Dates: start: 20150115, end: 20150115
  55. ATENOLOL. [Concomitant]
     Active Substance: ATENOLOL
     Dosage: 25 MG, UNK
  56. FIORICET [Concomitant]
     Active Substance: ACETAMINOPHEN\BUTALBITAL\CAFFEINE
     Dosage: UNK
     Route: 048
  57. FISH OIL CONCENTRATE [Concomitant]
     Dosage: UNK
     Route: 048
  58. LAMOTRIGINE. [Concomitant]
     Active Substance: LAMOTRIGINE
     Dosage: 25 MG, BID
     Route: 048
  59. TRAZODONE [Concomitant]
     Active Substance: TRAZODONE HYDROCHLORIDE
     Dosage: 100 MG, QHS
     Route: 048

REACTIONS (8)
  - Arthropathy [Not Recovered/Not Resolved]
  - Muscular weakness [Not Recovered/Not Resolved]
  - Musculoskeletal pain [Not Recovered/Not Resolved]
  - Alopecia [Not Recovered/Not Resolved]
  - Drug ineffective [Unknown]
  - Occipital neuralgia [Unknown]
  - Long thoracic nerve palsy [Not Recovered/Not Resolved]
  - Muscle spasms [Not Recovered/Not Resolved]

NARRATIVE: CASE EVENT DATE: 201409
